FAERS Safety Report 14854778 (Version 1)
Quarter: 2018Q2

REPORT INFORMATION
  Report Type: Spontaneous
  Country: US (occurrence: US)
  Receive Date: 20180420
  Receipt Date: 20180420
  Transmission Date: 20180711
  Serious: Yes (Death)
  Sender: FDA-Public Use
  Company Number: None

PATIENT
  Age: 81 Year
  Sex: Male

DRUGS (15)
  1. HYDROCORTISONE. [Concomitant]
     Active Substance: HYDROCORTISONE
  2. CARAFATE [Concomitant]
     Active Substance: SUCRALFATE
  3. RA ACETAMINOPHEN ER [Concomitant]
  4. PRILOSEC [Concomitant]
     Active Substance: OMEPRAZOLE MAGNESIUM
  5. XGEVA [Suspect]
     Active Substance: DENOSUMAB
     Indication: BARRETT^S OESOPHAGUS
     Dosage: ?          OTHER FREQUENCY:EVERY 4 WEEKS FOR;?
     Route: 058
     Dates: start: 20180207
  6. COMPAZINE [Concomitant]
     Active Substance: PROCHLORPERAZINE MALEATE
  7. ZOLOFT [Concomitant]
     Active Substance: SERTRALINE HYDROCHLORIDE
  8. LORAZEPAM. [Concomitant]
     Active Substance: LORAZEPAM
  9. NORCO [Concomitant]
     Active Substance: ACETAMINOPHEN\HYDROCODONE BITARTRATE
  10. XANAX [Concomitant]
     Active Substance: ALPRAZOLAM
  11. LOMOTIL [Concomitant]
     Active Substance: ATROPINE SULFATE\DIPHENOXYLATE HYDROCHLORIDE
  12. ZOFRAN [Concomitant]
     Active Substance: ONDANSETRON HYDROCHLORIDE
  13. BISACODYL. [Concomitant]
     Active Substance: BISACODYL
  14. MORPHINE SULFATE/NS [Concomitant]
  15. SENEXONS [Concomitant]

REACTIONS (1)
  - Death [None]

NARRATIVE: CASE EVENT DATE: 20180420
